FAERS Safety Report 24164200 (Version 2)
Quarter: 2025Q1

REPORT INFORMATION
  Report Type: Spontaneous
  Country: US (occurrence: US)
  Receive Date: 20240801
  Receipt Date: 20250213
  Transmission Date: 20250409
  Serious: No
  Sender: MYLAN
  Company Number: US-MYLANLABS-2024M1069610

PATIENT
  Sex: Female
  Weight: 81.65 kg

DRUGS (1)
  1. VALSARTAN [Suspect]
     Active Substance: VALSARTAN
     Indication: Blood pressure increased
     Dosage: 80 MILLIGRAM, QID
     Route: 048

REACTIONS (7)
  - Skin burning sensation [Unknown]
  - Throat irritation [Unknown]
  - Nasal discomfort [Unknown]
  - Headache [Unknown]
  - Off label use [Unknown]
  - Product odour abnormal [Unknown]
  - Product taste abnormal [Unknown]
